FAERS Safety Report 15349498 (Version 3)
Quarter: 2018Q4

REPORT INFORMATION
  Report Type: Spontaneous
  Country: JP (occurrence: JP)
  Receive Date: 20180904
  Receipt Date: 20181121
  Transmission Date: 20190204
  Serious: Yes (Death)
  Sender: FDA-Public Use
  Company Number: JP-NAPPMUNDI-GBR-2018-0058929

PATIENT
  Age: 68 Year
  Sex: Male

DRUGS (3)
  1. ETODOLAC. [Concomitant]
     Active Substance: ETODOLAC
     Indication: RENAL CANCER
     Dosage: 400 MG, DAILY
     Route: 048
     Dates: end: 20180718
  2. OXYCONTIN [Suspect]
     Active Substance: OXYCODONE HYDROCHLORIDE
     Indication: RENAL CANCER
     Dosage: 20 MG, DAILY
     Route: 048
     Dates: start: 20180209, end: 20180718
  3. AMBROXOL HYDROCHLORIDE [Concomitant]
     Active Substance: AMBROXOL HYDROCHLORIDE
     Indication: SPUTUM RETENTION
     Dosage: 45 MG, DAILY
     Dates: end: 20180718

REACTIONS (2)
  - Mucous stools [Not Recovered/Not Resolved]
  - Renal cancer [Fatal]

NARRATIVE: CASE EVENT DATE: 201803
